FAERS Safety Report 11741306 (Version 1)
Quarter: 2015Q4

REPORT INFORMATION
  Report Type: Spontaneous
  Country: US (occurrence: US)
  Receive Date: 20151116
  Receipt Date: 20151116
  Transmission Date: 20160304
  Serious: No
  Sender: FDA-Public Use
  Company Number: US-009507513-1511USA004344

PATIENT
  Age: 28 Year
  Weight: 63.39 kg

DRUGS (1)
  1. NEXPLANON [Suspect]
     Active Substance: ETONOGESTREL
     Dosage: 1 ROD/ 3 YEARS
     Route: 059
     Dates: start: 20151105

REACTIONS (4)
  - Device deployment issue [Unknown]
  - Device difficult to use [Unknown]
  - Product quality issue [Unknown]
  - No adverse event [Unknown]

NARRATIVE: CASE EVENT DATE: 20151105
